FAERS Safety Report 5347179-5 (Version None)
Quarter: 2007Q2

REPORT INFORMATION
  Report Type: 
  Country: None (occurrence: None)
  Receive Date: 20070606
  Receipt Date: 20070529
  Transmission Date: 20071010
  Serious: Yes (Other)
  Sender: FDA-Public Use
  Company Number: PHMT2007CA01209

PATIENT
  Age: 78 Year
  Sex: Male

DRUGS (2)
  1. DIOVAN HCT [Suspect]
     Indication: HYPERTENSION
     Dosage: 160MG/12.5MG
     Route: 048
  2. DIOVAN [Suspect]
     Dosage: 160MG
     Route: 048
     Dates: start: 20070401

REACTIONS (5)
  - ANGINA PECTORIS [None]
  - BLOOD PRESSURE INADEQUATELY CONTROLLED [None]
  - CHROMATURIA [None]
  - MYALGIA [None]
  - NAUSEA [None]
